FAERS Safety Report 19406452 (Version 2)
Quarter: 2021Q2

REPORT INFORMATION
  Report Type: Spontaneous
  Country: US (occurrence: US)
  Receive Date: 20210611
  Receipt Date: 20210615
  Transmission Date: 20210717
  Serious: Yes (Other)
  Sender: FDA-Public Use
  Company Number: US-PFIZER INC-2021405495

PATIENT
  Sex: Male

DRUGS (1)
  1. THROMBIN?JMI [Suspect]
     Active Substance: THROMBIN
     Dosage: UNK
     Route: 061

REACTIONS (4)
  - Inappropriate schedule of product administration [Unknown]
  - Product preparation issue [Unknown]
  - Poor quality device used [Unknown]
  - Product reconstitution quality issue [Unknown]
